FAERS Safety Report 13177156 (Version 1)
Quarter: 2017Q1

REPORT INFORMATION
  Report Type: Report from Study
  Country: US (occurrence: US)
  Receive Date: 20170201
  Receipt Date: 20170201
  Transmission Date: 20170428
  Serious: No
  Sender: FDA-Public Use
  Company Number: US-EXELIXIS-CABO-16007257

PATIENT
  Sex: Female

DRUGS (1)
  1. COMETRIQ [Suspect]
     Active Substance: CABOZANTINIB S-MALATE
     Indication: THYROID CANCER
     Dosage: 140 MG, QD
     Route: 048
     Dates: start: 20160917, end: 20161006

REACTIONS (10)
  - Glossodynia [Unknown]
  - Dysgeusia [Unknown]
  - Vomiting [Unknown]
  - Rash [Recovered/Resolved]
  - Stomatitis [Recovering/Resolving]
  - Oral pain [Not Recovered/Not Resolved]
  - Fatigue [Unknown]
  - Pruritus [Recovered/Resolved]
  - Constipation [Not Recovered/Not Resolved]
  - Nasal ulcer [Recovered/Resolved]
